FAERS Safety Report 13910517 (Version 1)
Quarter: 2017Q3

REPORT INFORMATION
  Report Type: Spontaneous
  Country: US (occurrence: US)
  Receive Date: 20170825
  Receipt Date: 20170825
  Transmission Date: 20171127
  Serious: Yes (Hospitalization)
  Sender: FDA-Public Use
  Company Number: None

PATIENT
  Age: 61 Year
  Sex: Male
  Weight: 74.1 kg

DRUGS (18)
  1. ATORVASTATIN [Concomitant]
     Active Substance: ATORVASTATIN
  2. CINACALCET [Concomitant]
     Active Substance: CINACALCET
  3. VANCO [Concomitant]
     Active Substance: VANCOMYCIN
  4. DILTIAZEM. [Concomitant]
     Active Substance: DILTIAZEM
  5. FOLIC ACID. [Concomitant]
     Active Substance: FOLIC ACID
  6. ASPIRIN. [Concomitant]
     Active Substance: ASPIRIN
  7. LOSARTAN. [Concomitant]
     Active Substance: LOSARTAN
  8. METOPROLOL. [Concomitant]
     Active Substance: METOPROLOL
  9. ALLOPURINOL. [Concomitant]
     Active Substance: ALLOPURINOL
  10. APIXABAN [Suspect]
     Active Substance: APIXABAN
     Indication: ATRIAL FIBRILLATION
     Route: 048
     Dates: start: 20161106, end: 20170723
  11. VITAMIN B COMPLEX WITH C TAB [Concomitant]
  12. GENTAMICIN. [Concomitant]
     Active Substance: GENTAMICIN
  13. TAMSULOSIN [Concomitant]
     Active Substance: TAMSULOSIN
  14. OXYCODONE [Concomitant]
     Active Substance: OXYCODONE
  15. FERRLECIT [Concomitant]
     Active Substance: SODIUM FERRIC GLUCONATE COMPLEX
  16. HYDROMORPHONE [Concomitant]
     Active Substance: HYDROMORPHONE
  17. PERCOCET [Concomitant]
     Active Substance: ACETAMINOPHEN\OXYCODONE HYDROCHLORIDE
  18. EPOETIN ALFA [Concomitant]
     Active Substance: ERYTHROPOIETIN

REACTIONS (2)
  - Gastric ulcer haemorrhage [None]
  - Hypotension [None]

NARRATIVE: CASE EVENT DATE: 20170723
